FAERS Safety Report 6011274-8 (Version None)
Quarter: 2008Q4

REPORT INFORMATION
  Report Type: 
  Country: None (occurrence: None)
  Receive Date: 20081218
  Receipt Date: 20081211
  Transmission Date: 20090506
  Serious: Yes (Death, Hospitalization)
  Sender: FDA-Public Use
  Company Number: PHHY2008JP22692

PATIENT
  Sex: Male

DRUGS (4)
  1. EXJADE [Suspect]
     Indication: IRON OVERLOAD
     Dosage: 500 MG/DAY
     Route: 048
     Dates: start: 20080803
  2. EXJADE [Suspect]
     Dosage: 1000 MG/DAY
     Route: 048
     Dates: start: 20080801, end: 20080901
  3. EXJADE [Suspect]
     Dosage: 500 MG DAILY
     Dates: start: 20081001
  4. EXJADE [Suspect]
     Dosage: 1000 MG DAILY
     Dates: start: 20081101

REACTIONS (4)
  - BONE MARROW DISORDER [None]
  - DISEASE PROGRESSION [None]
  - ENCEPHALITIS [None]
  - PNEUMONIA [None]
